FAERS Safety Report 7032447-1 (Version None)
Quarter: 2010Q4

REPORT INFORMATION
  Report Type: 
  Country: None (occurrence: None)
  Receive Date: 20101007
  Receipt Date: 20091127
  Transmission Date: 20110411
  Serious: Yes (Hospitalization, Other)
  Sender: FDA-Public Use
  Company Number: KR-BRISTOL-MYERS SQUIBB COMPANY-14876999

PATIENT
  Age: 53 Year
  Sex: Female

DRUGS (7)
  1. CETUXIMAB [Suspect]
     Indication: COLORECTAL CANCER METASTATIC
     Route: 042
     Dates: start: 20090911, end: 20091124
  2. IRINOTECAN HCL [Suspect]
     Indication: COLORECTAL CANCER METASTATIC
     Route: 042
     Dates: start: 20090911, end: 20091124
  3. FOSAMAX [Concomitant]
  4. MAGNESIUM SULFATE [Concomitant]
     Dates: start: 20091127, end: 20091202
  5. CALCIUM GLUCONATE [Concomitant]
     Dates: start: 20091127, end: 20091202
  6. POTASSIUM CHLORIDE [Concomitant]
     Dates: start: 20091127, end: 20091202
  7. LOPERAMIDE OXIDE [Concomitant]
     Dates: start: 20091127, end: 20091202

REACTIONS (2)
  - HYPOCALCAEMIA [None]
  - HYPOMAGNESAEMIA [None]
